FAERS Safety Report 23554129 (Version 1)
Quarter: 2024Q1

REPORT INFORMATION
  Report Type: Spontaneous
  Country: US (occurrence: None)
  Receive Date: 20240222
  Receipt Date: 20240222
  Transmission Date: 20240410
  Serious: No
  Sender: FDA-Public Use
  Company Number: None

PATIENT
  Age: 52 Year
  Sex: Female
  Weight: 140.16 kg

DRUGS (1)
  1. COSENTYX [Suspect]
     Active Substance: SECUKINUMAB
     Indication: Ankylosing spondylitis
     Dosage: FREQUENCY : AS DIRECTED;?INJCCT 150MG (1 PCN) SUBCUTANCOUSLY ON DAY 28 (DOSC 5) AS DIRCCTCD. ?
     Route: 058
     Dates: start: 202309

REACTIONS (2)
  - Knee arthroplasty [None]
  - Thrombosis [None]
